FAERS Safety Report 6836856-2 (Version None)
Quarter: 2010Q3

REPORT INFORMATION
  Report Type: 
  Country: None (occurrence: None)
  Receive Date: 20100713
  Receipt Date: 20070428
  Transmission Date: 20110219
  Serious: No
  Sender: FDA-Public Use
  Company Number: US-PFIZER INC-2007035544

PATIENT
  Sex: Female
  Weight: 72.7 kg

DRUGS (6)
  1. CHANTIX [Suspect]
     Indication: SMOKING CESSATION THERAPY
     Dates: start: 20070101, end: 20070401
  2. NICOTIANA TABACUM [Suspect]
  3. PAXIL [Concomitant]
     Indication: DEPRESSION
  4. TRICOR [Concomitant]
  5. VALIUM [Concomitant]
     Indication: NERVOUS SYSTEM DISORDER
  6. PREVACID [Concomitant]
     Indication: ABDOMINAL DISCOMFORT

REACTIONS (7)
  - ABDOMINAL DISCOMFORT [None]
  - ANXIETY [None]
  - DYSGEUSIA [None]
  - HEADACHE [None]
  - MALAISE [None]
  - SOMNOLENCE [None]
  - TENSION [None]
